FAERS Safety Report 21776768 (Version 2)
Quarter: 2023Q1

REPORT INFORMATION
  Report Type: Spontaneous
  Country: TW (occurrence: TW)
  Receive Date: 20221226
  Receipt Date: 20230223
  Transmission Date: 20230418
  Serious: Yes (Hospitalization, Other)
  Sender: FDA-Public Use
  Company Number: TW-002147023-NVSC2022TW296254

PATIENT
  Age: 30 Year
  Sex: Female

DRUGS (1)
  1. ILARIS [Suspect]
     Active Substance: CANAKINUMAB
     Indication: Product used for unknown indication
     Dosage: (STARTED TWO WEEKS AGO)
     Route: 065

REACTIONS (3)
  - Shock [Unknown]
  - Thyrotoxic crisis [Unknown]
  - Abdominal pain [Unknown]
